FAERS Safety Report 7860156-5 (Version None)
Quarter: 2011Q4

REPORT INFORMATION
  Report Type: 
  Country: None (occurrence: None)
  Receive Date: 20111026
  Receipt Date: 20111012
  Transmission Date: 20120403
  Serious: Yes (Hospitalization, Other)
  Sender: FDA-Public Use
  Company Number: TPA2011A03662

PATIENT
  Age: 57 Year
  Sex: Male
  Weight: 117.9352 kg

DRUGS (7)
  1. MICRONASE [Concomitant]
  2. ALTACE [Concomitant]
  3. ZOCOR [Concomitant]
  4. ACTOS [Suspect]
     Indication: TYPE 2 DIABETES MELLITUS
     Dosage: 45 MG, 1 IN 1 D, PER ORAL
     Route: 048
     Dates: end: 20110701
  5. GLUCOPHAGE [Concomitant]
  6. JANUVIA (SITAGLIPTIDE PHOSPHATE) [Concomitant]
  7. PLENDIL [Concomitant]

REACTIONS (3)
  - BLADDER TRANSITIONAL CELL CARCINOMA [None]
  - ADRENAL NEOPLASM [None]
  - HAEMATURIA [None]
